FAERS Safety Report 12500228 (Version 1)
Quarter: 2016Q2

REPORT INFORMATION
  Report Type: Spontaneous
  Country: US (occurrence: US)
  Receive Date: 20160627
  Receipt Date: 20160627
  Transmission Date: 20160815
  Serious: No
  Sender: FDA-Public Use
  Company Number: US-B.I. PHARMACEUTICALS,INC./RIDGEFIELD-2016-BI-38128BP

PATIENT
  Age: 71 Year
  Sex: Female

DRUGS (1)
  1. STIOLTO RESPIMAT [Suspect]
     Active Substance: OLODATEROL HYDROCHLORIDE\TIOTROPIUM BROMIDE MONOHYDRATE
     Indication: EMPHYSEMA
     Dosage: 5 MCG
     Route: 055
     Dates: start: 2015, end: 201605

REACTIONS (12)
  - Dyspnoea [Recovered/Resolved]
  - Urticaria [Recovered/Resolved]
  - Arthralgia [Recovered/Resolved]
  - Urine output decreased [Recovered/Resolved]
  - Urinary incontinence [Recovered/Resolved]
  - Movement disorder [Recovered/Resolved]
  - Hypertension [Recovered/Resolved]
  - Halo vision [Recovered/Resolved]
  - Back pain [Recovered/Resolved]
  - Micturition disorder [Recovered/Resolved]
  - Micturition urgency [Recovered/Resolved]
  - Vision blurred [Recovered/Resolved]

NARRATIVE: CASE EVENT DATE: 201602
